FAERS Safety Report 13029327 (Version 1)
Quarter: 2016Q4

REPORT INFORMATION
  Report Type: Report from Study
  Country: US (occurrence: US)
  Receive Date: 20161215
  Receipt Date: 20161215
  Transmission Date: 20170207
  Serious: Yes (Other)
  Sender: FDA-Public Use
  Company Number: US-AMGEN-USASL2016176416

PATIENT
  Sex: Female

DRUGS (1)
  1. ENBREL [Suspect]
     Active Substance: ETANERCEPT
     Indication: RHEUMATOID ARTHRITIS
     Dosage: 50 MG, UNK
     Route: 065

REACTIONS (7)
  - Blood iron decreased [Unknown]
  - Pain in extremity [Unknown]
  - Oxygen supplementation [Not Recovered/Not Resolved]
  - Injection site reaction [Recovering/Resolving]
  - Sinusitis [Unknown]
  - Continuous positive airway pressure [Unknown]
  - Musculoskeletal stiffness [Unknown]
